FAERS Safety Report 18298902 (Version 3)
Quarter: 2021Q1

REPORT INFORMATION
  Report Type: Spontaneous
  Country: BR (occurrence: BR)
  Receive Date: 20200923
  Receipt Date: 20210322
  Transmission Date: 20210419
  Serious: Yes (Death)
  Sender: FDA-Public Use
  Company Number: BR-ROCHE-2681163

PATIENT
  Sex: Male

DRUGS (1)
  1. OCREVUS [Suspect]
     Active Substance: OCRELIZUMAB
     Indication: PRODUCT USED FOR UNKNOWN INDICATION
     Dosage: : 2 FLASKS OF OCRELIZUMAB 30MG/ML WITH 10ML EACH
     Route: 065
     Dates: start: 20191115

REACTIONS (1)
  - COVID-19 [Fatal]
